FAERS Safety Report 16853383 (Version 5)
Quarter: 2020Q2

REPORT INFORMATION
  Report Type: Spontaneous
  Country: US (occurrence: US)
  Receive Date: 20190925
  Receipt Date: 20200407
  Transmission Date: 20200713
  Serious: Yes (Other)
  Sender: FDA-Public Use
  Company Number: US-AMGEN INC.-USASP2019155786

PATIENT
  Age: 61 Year
  Sex: Male
  Weight: 69.75 kg

DRUGS (25)
  1. DIVALPROEX [Concomitant]
     Active Substance: DIVALPROEX SODIUM
     Dosage: 500 MILLIGRAM, QD
     Route: 048
  2. SINGULAIR [Concomitant]
     Active Substance: MONTELUKAST SODIUM
     Dosage: 10 MILLIGRAM, QD (NIGHTLY)
     Route: 048
  3. LUTEIN [TAGETES SPP.] [Concomitant]
     Dosage: 6 MILLIGRAM, QD
     Route: 048
  4. WELLBUTRIN [Concomitant]
     Active Substance: BUPROPION HYDROCHLORIDE
     Dosage: 300 MILLIGRAM, QD  (EVERY MORNING)
     Route: 048
  5. COZAAR [Concomitant]
     Active Substance: LOSARTAN POTASSIUM
     Indication: BLOOD PRESSURE INCREASED
     Dosage: 25 MILLIGRAM, QD (BUT CAN INCREASE TO 50 MG DAILY HEN BLOOD PRESSURE IS ELEVATED)
     Route: 048
  6. NEURONTIN [Concomitant]
     Active Substance: GABAPENTIN
     Dosage: 300 MILLIGRAM, TID
     Route: 048
  7. ZINC [ZINC SULFATE] [Concomitant]
     Dosage: UNK
     Route: 048
  8. AIMOVIG [Suspect]
     Active Substance: ERENUMAB-AOOE
     Indication: MIGRAINE
     Dosage: 140 MILLIGRAM, QMO
     Route: 058
     Dates: start: 20190913, end: 20190913
  9. LIPITOR [Concomitant]
     Active Substance: ATORVASTATIN CALCIUM
     Dosage: 20 MILLIGRAM, QD  (NIGHTLY)
     Route: 048
  10. FURIDE [Concomitant]
     Dosage: UNK
     Route: 065
  11. RETIN-A [Concomitant]
     Active Substance: TRETINOIN
     Dosage: 1 DOSAGE FORM, QD (EVERY NIGHT AT BEDTIME)
     Route: 061
  12. OMEGA-3 FISH OIL [Concomitant]
     Active Substance: FISH OIL\OMEGA-3 FATTY ACIDS
     Dosage: 1200 MILLIGRAM, QD
     Route: 048
  13. CENTRUM SILVER [ASCORBIC ACID;CALCIUM;MINERALS NOS;RETINOL;TOCOPHERYL [Concomitant]
     Dosage: UNK, QD
     Route: 048
  14. BUSPAR [Concomitant]
     Active Substance: BUSPIRONE HYDROCHLORIDE
     Dosage: 15 MILLIGRAM, TID
     Route: 048
  15. ANDROGEL [Concomitant]
     Active Substance: TESTOSTERONE
     Dosage: 1 DOSAGE FORM, BID
     Route: 061
  16. FLONASE [Concomitant]
     Active Substance: FLUTICASONE PROPIONATE
     Dosage: 1 DOSAGE FORM, QD
     Route: 045
  17. DEPO-TESTOSTERONE [Concomitant]
     Active Substance: TESTOSTERONE CYPIONATE
     Dosage: 200 MILLIGRAM (EVERY 14 DAYS)
     Route: 030
  18. B COMPLEX [VITAMIN B COMPLEX] [Concomitant]
     Dosage: UNK
     Route: 048
  19. TRINTELLIX [Concomitant]
     Active Substance: VORTIOXETINE HYDROBROMIDE
     Dosage: 10 MILLIGRAM
     Route: 048
  20. GINGER [ZINGIBER OFFICINALE] [Concomitant]
     Active Substance: GINGER
     Dosage: UNK
     Route: 048
  21. VITAMIN D [ERGOCALCIFEROL] [Concomitant]
     Active Substance: ERGOCALCIFEROL
     Dosage: 50000 UNIT, QD
  22. CENTRUM MEN 50+ [Concomitant]
     Active Substance: MINERALS\VITAMINS
     Dosage: UNK UNK, QD
     Route: 065
  23. METROCREAM [Concomitant]
     Active Substance: METRONIDAZOLE
     Dosage: 1 DOSAGE FORM, BID
     Route: 061
  24. ASTELIN [Concomitant]
     Active Substance: AZELASTINE HYDROCHLORIDE
     Dosage: 2 DOSAGE FORM, BID  (USE IN EACH NOSTRIL)
     Route: 045
  25. ATIVAN [Concomitant]
     Active Substance: LORAZEPAM
     Indication: ANXIETY
     Dosage: 1 MILLIGRAM (EVERY 6 HOURS AS NEEDED)
     Route: 048

REACTIONS (2)
  - Heart rate decreased [Not Recovered/Not Resolved]
  - Blood pressure increased [Not Recovered/Not Resolved]

NARRATIVE: CASE EVENT DATE: 20190915
